FAERS Safety Report 18202966 (Version 2)
Quarter: 2020Q4

REPORT INFORMATION
  Report Type: Spontaneous
  Country: US (occurrence: US)
  Receive Date: 20200827
  Receipt Date: 20201016
  Transmission Date: 20210113
  Serious: Yes (Hospitalization, Other)
  Sender: FDA-Public Use
  Company Number: US-PFIZER INC-2020330222

PATIENT
  Age: 66 Year
  Sex: Male
  Weight: 73.03 kg

DRUGS (3)
  1. WARFARIN [Concomitant]
     Active Substance: WARFARIN
  2. RAPAMUNE [Suspect]
     Active Substance: SIROLIMUS
     Indication: LEUKAEMIA
     Dosage: 12 PILLS (6MG) AT THE FIRST NIGHT
     Dates: start: 2020
  3. RAPAMUNE [Suspect]
     Active Substance: SIROLIMUS
     Indication: MYELODYSPLASTIC SYNDROME
     Dosage: 6 PILLS (3MG) AT 6:00 PM DAILY
     Route: 048
     Dates: start: 2020

REACTIONS (8)
  - Off label use [Unknown]
  - Pneumonia [Unknown]
  - International normalised ratio increased [Unknown]
  - Renal impairment [Unknown]
  - Asthenia [Unknown]
  - Decreased appetite [Not Recovered/Not Resolved]
  - Product use in unapproved indication [Unknown]
  - Haematoma [Unknown]

NARRATIVE: CASE EVENT DATE: 2020
